FAERS Safety Report 12694149 (Version 2)
Quarter: 2016Q3

REPORT INFORMATION
  Report Type: Spontaneous
  Country: US (occurrence: US)
  Receive Date: 20160829
  Receipt Date: 20160912
  Transmission Date: 20161109
  Serious: No
  Sender: FDA-Public Use
  Company Number: US-PFIZER INC-2016402358

PATIENT
  Age: 71 Year
  Sex: Female
  Weight: 63.5 kg

DRUGS (9)
  1. CHLORTALIDONE [Concomitant]
     Active Substance: CHLORTHALIDONE
     Indication: BLOOD PRESSURE ABNORMAL
     Dosage: 12.5 MG, DAILY
     Route: 048
  2. ATORVASTATIN [Concomitant]
     Active Substance: ATORVASTATIN
     Indication: BLOOD CHOLESTEROL ABNORMAL
     Dosage: 10 MG, DAILY
     Route: 048
  3. CELECOXIB. [Suspect]
     Active Substance: CELECOXIB
     Indication: RADICULOPATHY
     Dosage: 200 MG, 1X/DAY
     Route: 048
     Dates: end: 20160819
  4. NEXIUM [Concomitant]
     Active Substance: ESOMEPRAZOLE MAGNESIUM
     Indication: GASTROOESOPHAGEAL REFLUX DISEASE
     Dosage: 40MG CAPSULE BY MOUTH AT BEDTIME
     Route: 048
  5. CELECOXIB. [Suspect]
     Active Substance: CELECOXIB
     Dosage: 200 MG, DAILY
     Route: 048
     Dates: start: 20160607, end: 20160818
  6. VITAMIN C [Concomitant]
     Active Substance: ASCORBIC ACID
  7. VALSARTAN. [Concomitant]
     Active Substance: VALSARTAN
     Indication: BLOOD PRESSURE ABNORMAL
     Dosage: 40 MG, DAILY
     Route: 048
     Dates: start: 201604
  8. CALCIUM [Concomitant]
     Active Substance: CALCIUM
  9. LISINOPRIL. [Concomitant]
     Active Substance: LISINOPRIL
     Dosage: UNK

REACTIONS (1)
  - Drug ineffective [Unknown]

NARRATIVE: CASE EVENT DATE: 20160607
